FAERS Safety Report 9126459 (Version 1)
Quarter: 2013Q1

REPORT INFORMATION
  Report Type: Spontaneous
  Country: ID (occurrence: ID)
  Receive Date: 20130121
  Receipt Date: 20130121
  Transmission Date: 20140127
  Serious: Yes (Death, Hospitalization)
  Sender: FDA-Public Use
  Company Number: ID-BAXTER-2013BAX002785

PATIENT
  Age: 42 Year
  Sex: Male

DRUGS (5)
  1. ENDOXAN [Suspect]
     Indication: LYMPHOMA
     Route: 065
  2. DOXORUBICIN [Suspect]
     Indication: LYMPHOMA
     Route: 065
  3. VINCRISTINE [Suspect]
     Indication: LYMPHOMA
     Route: 065
  4. PREDNISONE [Suspect]
     Indication: LYMPHOMA
     Route: 065
  5. RITUXIMAB [Suspect]
     Indication: LYMPHOMA
     Route: 065

REACTIONS (7)
  - Acute hepatic failure [Fatal]
  - Hepatic encephalopathy [None]
  - Loss of consciousness [None]
  - Delirium [None]
  - Tachycardia [None]
  - Tachypnoea [None]
  - Haematemesis [None]
